FAERS Safety Report 5573490-9 (Version None)
Quarter: 2007Q4

REPORT INFORMATION
  Report Type: 
  Country: None (occurrence: None)
  Receive Date: 20071220
  Receipt Date: 20071220
  Transmission Date: 20080405
  Serious: Yes (Hospitalization)
  Sender: FDA-Public Use
  Company Number: None

PATIENT
  Sex: Female
  Weight: 82.5 kg

DRUGS (2)
  1. CYCLOPHOSPHAMIDE [Suspect]
     Dosage: 1150 MG
  2. DOXORUBICIN HYDROCHLORIDE [Suspect]
     Dosage: 115 MG

REACTIONS (6)
  - DIZZINESS [None]
  - EAR PAIN [None]
  - FEBRILE NEUTROPENIA [None]
  - PAIN IN EXTREMITY [None]
  - PHARYNGOLARYNGEAL PAIN [None]
  - VOMITING [None]
